FAERS Safety Report 5508813-X (Version None)
Quarter: 2007Q4

REPORT INFORMATION
  Report Type: 
  Country: None (occurrence: None)
  Receive Date: 20071107
  Receipt Date: 20071105
  Transmission Date: 20080405
  Serious: Yes (Hospitalization)
  Sender: FDA-Public Use
  Company Number: US-JNJFOC-20071101416

PATIENT
  Age: 34 Year
  Sex: Male
  Weight: 56.7 kg

DRUGS (3)
  1. EXTRA STRENGTH TYLENOL [Suspect]
     Indication: INSOMNIA
  2. PAXIL [Concomitant]
  3. ZANTAC [Concomitant]

REACTIONS (1)
  - INTENTIONAL OVERDOSE [None]
